FAERS Safety Report 4868582-3 (Version None)
Quarter: 2005Q4

REPORT INFORMATION
  Report Type: 
  Country: None (occurrence: None)
  Receive Date: 20051223
  Receipt Date: 20051212
  Transmission Date: 20060501
  Serious: Yes (Hospitalization)
  Sender: FDA-Public Use
  Company Number: 2005169564

PATIENT
  Age: 31 Year
  Sex: Female
  Weight: 44 kg

DRUGS (4)
  1. DOXORUBICIN HCL [Suspect]
     Indication: HODGKIN'S DISEASE
     Dosage: 10 MG
     Dates: start: 20050518, end: 20050928
  2. DACARBAZINE [Suspect]
     Indication: HODGKIN'S DISEASE
  3. VINBLASTINE SULFATE [Suspect]
     Indication: HODGKIN'S DISEASE
     Dates: start: 20050518, end: 20050528
  4. BLEOMYCIN SULFATE [Concomitant]

REACTIONS (5)
  - CHEST PAIN [None]
  - PAIN [None]
  - PERICARDIAL EFFUSION [None]
  - PLEURAL EFFUSION [None]
  - SENSE OF OPPRESSION [None]
